FAERS Safety Report 17133672 (Version 1)
Quarter: 2019Q4

REPORT INFORMATION
  Report Type: Spontaneous
  Country: SE (occurrence: SE)
  Receive Date: 20191210
  Receipt Date: 20191210
  Transmission Date: 20200122
  Serious: Yes (Hospitalization, Other)
  Sender: FDA-Public Use
  Company Number: SE-SA-2019SA337204

PATIENT
  Age: 62 Year
  Sex: Female

DRUGS (2)
  1. STILNOCT [Suspect]
     Active Substance: ZOLPIDEM TARTRATE
     Dosage: UNK UNK, UNK
     Route: 048
     Dates: start: 201809, end: 201809
  2. PROPAVAN [Suspect]
     Active Substance: PROPIOMAZINE
     Dosage: 4+3 PIECES
     Route: 048
     Dates: start: 201809, end: 201809

REACTIONS (2)
  - Intentional overdose [Unknown]
  - Intentional self-injury [Unknown]

NARRATIVE: CASE EVENT DATE: 201809
